FAERS Safety Report 8267730-5 (Version None)
Quarter: 2012Q2

REPORT INFORMATION
  Report Type: 
  Country: None (occurrence: None)
  Receive Date: 20120409
  Receipt Date: 20120402
  Transmission Date: 20120825
  Serious: Yes (Other)
  Sender: FDA-Public Use
  Company Number: US-JNJFOC-20120401438

PATIENT
  Sex: Female
  Weight: 110.22 kg

DRUGS (2)
  1. NUCYNTA [Suspect]
     Dosage: 10 TIMES A DAY
     Route: 048
     Dates: start: 20110601, end: 20110701
  2. NUCYNTA [Suspect]
     Indication: ARTHRITIS
     Dosage: 6 TIMES A DAY
     Route: 048
     Dates: start: 20090101, end: 20110601

REACTIONS (2)
  - FIBROMYALGIA [None]
  - DRUG INEFFECTIVE [None]
